FAERS Safety Report 4897564-0 (Version None)
Quarter: 2006Q1

REPORT INFORMATION
  Report Type: 
  Country: None (occurrence: None)
  Receive Date: 20060201
  Receipt Date: 20060118
  Transmission Date: 20060701
  Serious: Yes (Death, Congenital Anomaly)
  Sender: FDA-Public Use
  Company Number: JP-KINGPHARMUSA00001-K200600057

PATIENT
  Sex: Female

DRUGS (2)
  1. METHIMAZOLE TABLETS, USP [Suspect]
     Indication: BASEDOW'S DISEASE
     Dosage: 20 MG, QD
     Route: 064
  2. METHIMAZOLE TABLETS, USP [Suspect]
     Dosage: 5 MG, QD
     Route: 064

REACTIONS (13)
  - CAESAREAN SECTION [None]
  - COLOBOMA [None]
  - COLONIC OBSTRUCTION [None]
  - CONGENITAL INTESTINAL MALFORMATION [None]
  - DRUG EXPOSURE DURING PREGNANCY [None]
  - FOETAL GROWTH RETARDATION [None]
  - GALLBLADDER ANOMALY CONGENITAL [None]
  - HAEMORRHAGE [None]
  - MICROCORNEA [None]
  - NIPPLE DISORDER [None]
  - PLACENTA PRAEVIA [None]
  - SHOCK HAEMORRHAGIC [None]
  - UMBILICAL HAEMORRHAGE [None]
